FAERS Safety Report 18862740 (Version 5)
Quarter: 2022Q1

REPORT INFORMATION
  Report Type: Spontaneous
  Country: JP (occurrence: JP)
  Receive Date: 20210208
  Receipt Date: 20220304
  Transmission Date: 20220423
  Serious: Yes (Death, Hospitalization, Disabling, Other)
  Sender: FDA-Public Use
  Company Number: JP-MSD-M2021-02659

PATIENT
  Age: 84 Year
  Sex: Male
  Weight: 50 kg

DRUGS (7)
  1. KEYTRUDA [Suspect]
     Active Substance: PEMBROLIZUMAB
     Indication: Renal cell carcinoma stage IV
     Dosage: 200 MILLIGRAM, Q3W
     Route: 041
     Dates: start: 20201118, end: 20210120
  2. KEYTRUDA [Suspect]
     Active Substance: PEMBROLIZUMAB
     Dosage: 200 MILLIGRAM
     Route: 041
     Dates: start: 20210226, end: 20210226
  3. AXITINIB [Suspect]
     Active Substance: AXITINIB
     Indication: Renal cell carcinoma stage IV
     Dosage: 10 MILLIGRAM
     Route: 048
     Dates: start: 20201117, end: 20210105
  4. AXITINIB [Suspect]
     Active Substance: AXITINIB
     Dosage: 6 MILLIGRAM
     Route: 048
     Dates: start: 20210106, end: 20210119
  5. AXITINIB [Suspect]
     Active Substance: AXITINIB
     Dosage: 2 MILLIGRAM
     Route: 048
     Dates: start: 20210120, end: 20210202
  6. AXITINIB [Suspect]
     Active Substance: AXITINIB
     Dosage: 4 MILLIGRAM
     Route: 048
     Dates: start: 20210203, end: 20210212
  7. AMLODIPINE BESYLATE [Concomitant]
     Active Substance: AMLODIPINE BESYLATE
     Indication: Hypertension
     Dosage: 5 MILLIGRAM, QD
     Route: 048

REACTIONS (8)
  - Disseminated intravascular coagulation [Unknown]
  - Autoimmune hepatitis [Recovering/Resolving]
  - Interstitial lung disease [Unknown]
  - Stomatitis [Unknown]
  - Opportunistic infection [Fatal]
  - Abdominal discomfort [Recovering/Resolving]
  - Faeces soft [Unknown]
  - Off label use [Unknown]

NARRATIVE: CASE EVENT DATE: 20201101
